FAERS Safety Report 15827275 (Version 3)
Quarter: 2019Q3

REPORT INFORMATION
  Report Type: Spontaneous
  Country: US (occurrence: US)
  Receive Date: 20190115
  Receipt Date: 20190822
  Transmission Date: 20191004
  Serious: Yes (Hospitalization)
  Sender: FDA-Public Use
  Company Number: US-VERTEX PHARMACEUTICALS-2019-000237

PATIENT
  Age: 11 Year
  Sex: Male
  Weight: 32 kg

DRUGS (17)
  1. ORKAMBI [Suspect]
     Active Substance: IVACAFTOR\LUMACAFTOR
     Indication: CYSTIC FIBROSIS
     Dosage: 2 DOSAGE FORM (100/125 MG EACH), BID
     Route: 048
     Dates: start: 20170921
  2. SULFAMETHOXAZOLE AND TRIMETHOPRIM [Concomitant]
     Active Substance: SULFAMETHOXAZOLE\TRIMETHOPRIM
     Dosage: ONE TABLET BY MOUTH TWICE DALIY FOR 21 DAYS
  3. ALBUTEROL                          /00139501/ [Concomitant]
     Active Substance: ALBUTEROL
     Dosage: 2.5 MG/ 3 ML, BID
  4. FLORASTOR [LACTOBACILLUS ACIDOPHILUS] [Concomitant]
     Dosage: 250 MG, QD
     Route: 048
  5. PROAIR HFA [Concomitant]
     Active Substance: ALBUTEROL SULFATE
     Dosage: USE 2-4 PUFFS EVERY 4-6 HOURS
  6. RANITIDINE HCL [Concomitant]
     Active Substance: RANITIDINE HYDROCHLORIDE
     Dosage: ONE TABLET PO TWICE DAILY
  7. RANITIDINE. [Concomitant]
     Active Substance: RANITIDINE
     Dosage: UNK
  8. SODIUM CHLORIDE. [Concomitant]
     Active Substance: SODIUM CHLORIDE
     Dosage: ONE VIAL BY NEBULIZER TWICE DAILY
  9. PARI [Concomitant]
     Dosage: USE WITH NEBULIZER AS DIRECTED
  10. FLOVENT HFA [Concomitant]
     Active Substance: FLUTICASONE PROPIONATE
     Dosage: TAKE 2 PUFFS WITH SPACER TWICE DAILY
  11. CREON [Concomitant]
     Active Substance: PANCRELIPASE AMYLASE\PANCRELIPASE LIPASE\PANCRELIPASE PROTEASE
     Dosage: 3 CAPSULES WITH MEALS, 2 CAPSULES WITH SNACKS
     Route: 048
  12. FLONASE ALLERGY RELIEF [Concomitant]
     Active Substance: FLUTICASONE PROPIONATE
     Dosage: 1 SPRAY EACH NOSTRIL EVERY OTHER DAY
  13. LORATADINE. [Concomitant]
     Active Substance: LORATADINE
     Dosage: 10 MG, QD
     Route: 048
  14. PULMOZYME [Concomitant]
     Active Substance: DORNASE ALFA
     Dosage: INHALE ONE VIAL (2.5 MG) ONCE DAILY
  15. PEDIASURE [NUTRIENTS NOS] [Concomitant]
     Dosage: 1.5 CAL, 4 CANS
     Route: 048
  16. AZITHROMYCIN ANHYDROUS. [Concomitant]
     Active Substance: AZITHROMYCIN ANHYDROUS
     Dosage: ONE TABLET PO MONDAY, WEDNESDAY, FRIDAY
  17. SINUS RINSE [Concomitant]
     Active Substance: SODIUM BICARBONATE\SODIUM CHLORIDE
     Dosage: ONE PACKET TWICE DAILY PRN

REACTIONS (3)
  - Bronchitis [Recovered/Resolved]
  - Infective pulmonary exacerbation of cystic fibrosis [Recovered/Resolved]
  - Influenza [Recovered/Resolved]

NARRATIVE: CASE EVENT DATE: 201811
